FAERS Safety Report 6313682-4 (Version None)
Quarter: 2009Q3

REPORT INFORMATION
  Report Type: 
  Country: None (occurrence: None)
  Receive Date: 20090817
  Receipt Date: 20090817
  Transmission Date: 20100115
  Serious: No
  Sender: FDA-Public Use
  Company Number: None

PATIENT
  Age: 81 Year
  Sex: Male
  Weight: 77.1 kg

DRUGS (1)
  1. ASPIRIN [Suspect]
     Dosage: 1 TAB EVERY DAY PO
     Route: 048

REACTIONS (2)
  - TREATMENT NONCOMPLIANCE [None]
  - UPPER GASTROINTESTINAL HAEMORRHAGE [None]
